APPROVED DRUG PRODUCT: PEN-VEE K
Active Ingredient: PENICILLIN V POTASSIUM
Strength: EQ 125MG BASE
Dosage Form/Route: TABLET;ORAL
Application: A060006 | Product #001
Applicant: WYETH AYERST LABORATORIES
Approved: Approved Prior to Jan 1, 1982 | RLD: No | RS: No | Type: DISCN